FAERS Safety Report 5654986-8 (Version None)
Quarter: 2008Q1

REPORT INFORMATION
  Report Type: 
  Country: None (occurrence: None)
  Receive Date: 20080307
  Receipt Date: 20071011
  Transmission Date: 20080703
  Serious: No
  Sender: FDA-Public Use
  Company Number: A0687165A

PATIENT
  Age: 57 Year
  Sex: Female

DRUGS (7)
  1. REQUIP [Suspect]
     Indication: RESTLESS LEGS SYNDROME
     Dosage: 1MG VARIABLE DOSE
     Route: 048
     Dates: start: 20040101
  2. SYNTHROID [Concomitant]
  3. EFFEXOR [Concomitant]
  4. MAXZIDE [Concomitant]
  5. PROTONIX [Concomitant]
  6. ULTRAM [Concomitant]
  7. PERCOCET [Concomitant]

REACTIONS (3)
  - RESTLESS LEGS SYNDROME [None]
  - RESTLESSNESS [None]
  - SOMNOLENCE [None]
